FAERS Safety Report 11945999 (Version 2)
Quarter: 2016Q2

REPORT INFORMATION
  Report Type: Report from Study
  Country: US (occurrence: US)
  Receive Date: 20160125
  Receipt Date: 20160421
  Transmission Date: 20160815
  Serious: No
  Sender: FDA-Public Use
  Company Number: US-AMGEN-USASL2015132268

PATIENT
  Age: 70 Year
  Sex: Female
  Weight: 62.13 kg

DRUGS (6)
  1. ASA [Concomitant]
     Active Substance: ASPIRIN
     Indication: STENT PLACEMENT
     Dosage: 81 MG, QD
     Route: 048
  2. ATORVASTATIN [Concomitant]
     Active Substance: ATORVASTATIN
     Indication: HYPERCHOLESTEROLAEMIA
     Dosage: 20 MG, QD
     Route: 048
  3. REPATHA [Suspect]
     Active Substance: EVOLOCUMAB
     Indication: HYPERCHOLESTEROLAEMIA
     Dosage: 140 MG, Q2WK
     Route: 058
     Dates: start: 20151013
  4. VITAMIN D3 [Concomitant]
     Active Substance: CHOLECALCIFEROL
     Indication: VITAMIN D DEFICIENCY
     Dosage: 5000 IU, QD
  5. NORVASC [Concomitant]
     Active Substance: AMLODIPINE BESYLATE
     Indication: HYPERTENSION
     Dosage: 5 MG, QD
     Route: 048
  6. REPATHA [Suspect]
     Active Substance: EVOLOCUMAB
     Indication: TYPE IIA HYPERLIPIDAEMIA

REACTIONS (23)
  - Pain [Unknown]
  - Diarrhoea [Unknown]
  - Adverse event [Unknown]
  - Cough [Unknown]
  - Migraine [Unknown]
  - Eye pain [Unknown]
  - Limb discomfort [Unknown]
  - Feeling hot [Unknown]
  - Night sweats [Unknown]
  - Nasal disorder [Unknown]
  - Dyspnoea exertional [Unknown]
  - Dizziness [Unknown]
  - Headache [Unknown]
  - Vision blurred [Unknown]
  - Paranasal sinus hypersecretion [Unknown]
  - Pain in extremity [Unknown]
  - Eye disorder [Unknown]
  - Ear disorder [Unknown]
  - Palpitations [Unknown]
  - Insomnia [Unknown]
  - Fatigue [Unknown]
  - Mobility decreased [Unknown]
  - Feeling abnormal [Unknown]

NARRATIVE: CASE EVENT DATE: 2015
